FAERS Safety Report 10023674 (Version 3)
Quarter: 2014Q2

REPORT INFORMATION
  Report Type: Report from Study
  Country: JP (occurrence: JP)
  Receive Date: 20140320
  Receipt Date: 20140612
  Transmission Date: 20141212
  Serious: Yes (Other)
  Sender: FDA-Public Use
  Company Number: JP-JNJFOC-20140305460

PATIENT
  Age: 53 Year
  Sex: Male
  Weight: 63 kg

DRUGS (14)
  1. STELARA [Suspect]
     Indication: PSORIATIC ARTHROPATHY
     Route: 058
     Dates: start: 20121130, end: 20121130
  2. STELARA [Suspect]
     Indication: PSORIATIC ARTHROPATHY
     Route: 058
     Dates: start: 20120817, end: 20120817
  3. STELARA [Suspect]
     Indication: PSORIATIC ARTHROPATHY
     Route: 058
     Dates: start: 20120525, end: 20120525
  4. STELARA [Suspect]
     Indication: PSORIATIC ARTHROPATHY
     Route: 058
     Dates: start: 20120224, end: 20120224
  5. STELARA [Suspect]
     Indication: PSORIATIC ARTHROPATHY
     Route: 058
     Dates: start: 20120127, end: 20120127
  6. VOLTAREN [Concomitant]
     Indication: ARTHRALGIA
     Route: 048
  7. MUCOSTA [Concomitant]
     Indication: GASTRITIS
     Route: 048
     Dates: end: 2014
  8. GASTER [Concomitant]
     Indication: GASTRITIS
     Route: 048
  9. LENDORMIN [Concomitant]
     Indication: INSOMNIA
     Route: 048
  10. TAKEPRON [Concomitant]
     Indication: GASTRITIS
     Route: 048
  11. ALLELOCK [Concomitant]
     Indication: PSORIATIC ARTHROPATHY
     Route: 048
  12. DEPAS [Concomitant]
     Indication: INSOMNIA
     Route: 048
     Dates: start: 20120329
  13. ANTEBATE [Concomitant]
     Indication: PSORIATIC ARTHROPATHY
     Route: 061
  14. ANTEBATE [Concomitant]
     Indication: PSORIATIC ARTHROPATHY
     Route: 061

REACTIONS (1)
  - Hepatic function abnormal [Recovered/Resolved]
